FAERS Safety Report 8361683-7 (Version None)
Quarter: 2012Q2

REPORT INFORMATION
  Report Type: 
  Country: None (occurrence: None)
  Receive Date: 20120515
  Receipt Date: 20120113
  Transmission Date: 20120825
  Serious: No
  Sender: FDA-Public Use
  Company Number: US-ABBOTT-12P-163-0893697-00

PATIENT
  Age: 39 Year
  Sex: Female

DRUGS (1)
  1. PROMETRIUM [Suspect]
     Indication: PROGESTERONE DECREASED
     Dates: start: 20111101

REACTIONS (3)
  - ABDOMINAL DISTENSION [None]
  - OFF LABEL USE [None]
  - FLATULENCE [None]
